FAERS Safety Report 8235086 (Version 2)
Quarter: 2012Q4

REPORT INFORMATION
  Report Type: 
  Country: US (occurrence: US)
  Receive Date: 20111108
  Receipt Date: 20120911
  Transmission Date: 20130627
  Serious: Yes (Other)
  Sender: FDA-Public Use
  Company Number: US-US-EMD SERONO, INC.-7093251

PATIENT
  Sex: Female

DRUGS (4)
  1. REBIF [Suspect]
     Indication: PROGRESSIVE MULTIPLE SCLEROSIS
     Route: 058
     Dates: start: 20060317
  2. BACLOFEN [Concomitant]
     Indication: MUSCLE SPASMS
  3. TIZANIDINE [Concomitant]
     Indication: MUSCLE SPASMS
  4. HYDROCODONE [Concomitant]
     Indication: PAIN

REACTIONS (3)
  - Unresponsive to stimuli [Recovered/Resolved]
  - Eye movement disorder [Recovered/Resolved]
  - Vitamin D decreased [Unknown]
